FAERS Safety Report 5708364-3 (Version None)
Quarter: 2008Q2

REPORT INFORMATION
  Report Type: 
  Country: None (occurrence: None)
  Receive Date: 20080417
  Receipt Date: 20080402
  Transmission Date: 20081010
  Serious: Yes (Life-Threatening, Hospitalization)
  Sender: FDA-Public Use
  Company Number: NL-GENENTECH-255843

PATIENT
  Sex: Female

DRUGS (18)
  1. BEVACIZUMAB [Suspect]
     Indication: ACUTE MYELOID LEUKAEMIA
     Dosage: UNK, UNKNOWN
     Route: 065
     Dates: start: 20080201
  2. DOMPERIDON [Concomitant]
     Indication: DRUG USE FOR UNKNOWN INDICATION
     Dosage: UNK, UNK
     Dates: start: 20080201, end: 20080213
  3. FUROSEMIDE [Concomitant]
     Indication: DRUG USE FOR UNKNOWN INDICATION
     Dosage: UNK, UNK
     Dates: start: 20080123, end: 20080213
  4. VORICONAZOLE [Concomitant]
     Indication: DRUG USE FOR UNKNOWN INDICATION
     Dosage: UNK, UNK
     Dates: start: 20080129
  5. TIENAM [Concomitant]
     Indication: DRUG USE FOR UNKNOWN INDICATION
     Dosage: UNK, UNK
     Dates: start: 20080121, end: 20080208
  6. CIPROFLOXACIN HCL [Concomitant]
     Indication: DRUG USE FOR UNKNOWN INDICATION
     Dosage: UNK, UNK
     Dates: start: 20080108, end: 20080208
  7. METOCLOPRAMIDE [Concomitant]
     Indication: DRUG USE FOR UNKNOWN INDICATION
     Dosage: UNK, UNK
     Dates: start: 20080121, end: 20080212
  8. SODIUM CHLORIDE I.V. [Concomitant]
     Indication: DRUG USE FOR UNKNOWN INDICATION
  9. ROCEPHIN [Concomitant]
     Indication: DRUG USE FOR UNKNOWN INDICATION
  10. SOLU-MEDROL [Concomitant]
     Indication: DRUG USE FOR UNKNOWN INDICATION
     Dates: end: 20080303
  11. FRAXODI [Concomitant]
     Indication: DRUG USE FOR UNKNOWN INDICATION
     Dates: end: 20080228
  12. ALLOPURINOL [Concomitant]
     Indication: DRUG USE FOR UNKNOWN INDICATION
  13. PANTOZOL [Concomitant]
     Indication: DRUG USE FOR UNKNOWN INDICATION
     Dates: start: 20080129, end: 20080214
  14. CALCICHEW [Concomitant]
     Indication: DRUG USE FOR UNKNOWN INDICATION
  15. FRAXIPARINE [Concomitant]
     Indication: DRUG USE FOR UNKNOWN INDICATION
  16. PARACETAMOL [Concomitant]
     Indication: DRUG USE FOR UNKNOWN INDICATION
     Dates: start: 20080123, end: 20080210
  17. MOVICOLON [Concomitant]
     Indication: DRUG USE FOR UNKNOWN INDICATION
     Dates: start: 20080123, end: 20080213
  18. LIDOCAINE [Concomitant]
     Indication: DRUG USE FOR UNKNOWN INDICATION
     Dosage: UNK, UNK
     Dates: start: 20080121, end: 20080208

REACTIONS (3)
  - BLOOD SODIUM INCREASED [None]
  - HYPOKALAEMIA [None]
  - RENAL FAILURE [None]
